FAERS Safety Report 18317942 (Version 2)
Quarter: 2020Q4

REPORT INFORMATION
  Report Type: Report from Study
  Country: CN (occurrence: CN)
  Receive Date: 20200928
  Receipt Date: 20201105
  Transmission Date: 20210113
  Serious: Yes (Hospitalization)
  Sender: FDA-Public Use
  Company Number: CN-TEVA-2020-CN-1828583

PATIENT
  Age: 71 Year
  Sex: Female
  Weight: 55 kg

DRUGS (6)
  1. PARIET [Concomitant]
     Active Substance: RABEPRAZOLE SODIUM
     Indication: CHRONIC GASTRITIS
     Dosage: 1 DOSAGE FORMS DAILY;
     Route: 048
     Dates: start: 20200917
  2. SIFROL [Concomitant]
     Active Substance: PRAMIPEXOLE
     Indication: PARKINSON^S DISEASE
     Dosage: .75 MILLIGRAM DAILY;
     Route: 048
     Dates: start: 202005
  3. AZILECT [Suspect]
     Active Substance: RASAGILINE MESYLATE
     Indication: PARKINSON^S DISEASE
     Dosage: 1 MILLIGRAM DAILY;
     Route: 048
     Dates: start: 20200527, end: 20200929
  4. MADOPAR [Concomitant]
     Active Substance: BENSERAZIDE HYDROCHLORIDE\LEVODOPA
     Indication: PARKINSON^S DISEASE
     Dosage: 3.75 DOSAGE FORMS DAILY; PO, 1/2, 1/2, 1/4 TABLET/TIME, TID
     Route: 048
     Dates: start: 20200610
  5. ALPRAZOLAM. [Concomitant]
     Active Substance: ALPRAZOLAM
     Indication: INSOMNIA
     Route: 048
     Dates: start: 201811, end: 20190921
  6. DANSHEN [Concomitant]
     Active Substance: HERBALS
     Indication: CORONARY ARTERY DISEASE
     Dosage: 6 DOSAGE FORMS DAILY;
     Route: 048
     Dates: start: 2004, end: 20190921

REACTIONS (1)
  - Muscle atrophy [Recovering/Resolving]

NARRATIVE: CASE EVENT DATE: 20200909
